FAERS Safety Report 17711381 (Version 1)
Quarter: 2020Q2

REPORT INFORMATION
  Report Type: Spontaneous
  Country: US (occurrence: US)
  Receive Date: 20200424
  Receipt Date: 20200424
  Transmission Date: 20200714
  Serious: Yes (Death)
  Sender: FDA-Public Use
  Company Number: None

PATIENT
  Age: 60 Year
  Sex: Female
  Weight: 54 kg

DRUGS (12)
  1. CINACALCET. [Suspect]
     Active Substance: CINACALCET
     Indication: HYPERPARATHYROIDISM
     Route: 048
     Dates: start: 20200330
  2. SODIUM BICARBONATE. [Concomitant]
     Active Substance: SODIUM BICARBONATE
  3. FOLIC ACID. [Concomitant]
     Active Substance: FOLIC ACID
  4. CINACALCET. [Suspect]
     Active Substance: CINACALCET
     Indication: END STAGE RENAL DISEASE
     Route: 048
     Dates: start: 20200330
  5. VITAMIN D [Concomitant]
     Active Substance: VITAMIN D NOS
  6. CARVEDILOL. [Concomitant]
     Active Substance: CARVEDILOL
  7. MAGNESIUM CITRATE. [Concomitant]
     Active Substance: MAGNESIUM CITRATE
  8. FISH OIL [Concomitant]
     Active Substance: FISH OIL
  9. REN-A-VITE [Concomitant]
  10. RENVELA [Concomitant]
     Active Substance: SEVELAMER CARBONATE
  11. ENALAPRIL [Concomitant]
     Active Substance: ENALAPRIL
  12. COQ10 [Concomitant]
     Active Substance: UBIDECARENONE

REACTIONS (1)
  - Disease progression [None]
